FAERS Safety Report 11381167 (Version 1)
Quarter: 2015Q3

REPORT INFORMATION
  Report Type: Spontaneous
  Country: DK (occurrence: DK)
  Receive Date: 20150814
  Receipt Date: 20150814
  Transmission Date: 20151125
  Serious: Yes (Other)
  Sender: FDA-Public Use
  Company Number: DK-TEVA-585648ISR

PATIENT
  Age: 10 Year
  Sex: Male

DRUGS (7)
  1. METHOTREXATE [Suspect]
     Active Substance: METHOTREXATE
     Indication: ACUTE MYELOID LEUKAEMIA
     Dosage: 6 CHEMOTHERAPY COURSES WITH CUMULATIVE DOSES OF 6 X 12 MG
     Route: 037
  2. ETOPOSIDE. [Suspect]
     Active Substance: ETOPOSIDE
     Indication: ACUTE MYELOID LEUKAEMIA
     Dosage: 6 CHEMOTHERAPY COURSES WITH CUMULATIVE DOSES OF 1200MG/M^2
     Route: 042
  3. MITOXANTRONE [Suspect]
     Active Substance: MITOXANTRONE HYDROCHLORIDE
     Indication: ACUTE MYELOID LEUKAEMIA
     Dosage: 6 CHEMOTHERAPY COURSES WITH CUMULATIVE DOSES OF 60 MG/M^2
     Route: 042
  4. TIOGUANINE [Suspect]
     Active Substance: THIOGUANINE ANHYDROUS
     Indication: ACUTE MYELOID LEUKAEMIA
     Dosage: 6 CHEMOTHERAPY COURSES WITH CUMULATIVE DOSES OF 800 MG/M^2
     Route: 048
  5. CYTARABINE. [Suspect]
     Active Substance: CYTARABINE
     Indication: ACUTE MYELOID LEUKAEMIA
     Dosage: 6 CHEMOTHERAPY COURSES WITH CUMULATIVE DOSES OF 49,300 MG/M^2
     Route: 042
  6. IDARUBICIN [Suspect]
     Active Substance: IDARUBICIN
     Indication: ACUTE MYELOID LEUKAEMIA
     Dosage: 6 CHEMOTHERAPY COURSES WITH CUMULATIVE DOSES OF 36 MG/M^2
     Route: 042
  7. GEMTUZUMAB [Suspect]
     Active Substance: GEMTUZUMAB OZOGAMICIN
     Indication: ACUTE MYELOID LEUKAEMIA
     Dosage: TWO COURSES WITH GEMTUZUMAB OZOGAMIZIN 5 MG/M^2

REACTIONS (5)
  - Neutropenia [Unknown]
  - Colitis [Unknown]
  - Myelodysplastic syndrome [Recovered/Resolved]
  - Cytopenia [Unknown]
  - Thrombocytopenia [Unknown]
